FAERS Safety Report 8573934-4 (Version None)
Quarter: 2012Q3

REPORT INFORMATION
  Report Type: 
  Country: None (occurrence: None)
  Receive Date: 20120806
  Receipt Date: 20120731
  Transmission Date: 20120928
  Serious: Yes (Hospitalization)
  Sender: FDA-Public Use
  Company Number: US-CELGENEUS-163-21880-12053014

PATIENT
  Sex: Male
  Weight: 70.37 kg

DRUGS (8)
  1. REVLIMID [Suspect]
     Dosage: 25 MILLIGRAM
     Route: 048
     Dates: start: 20120502, end: 20120520
  2. ASPIRIN [Concomitant]
     Route: 065
  3. SODIUM BICARBONATE [Concomitant]
     Route: 065
  4. ARANESP [Concomitant]
     Route: 065
  5. REVLIMID [Suspect]
     Dosage: 5 MILLIGRAM
     Route: 048
     Dates: start: 20100501
  6. FLUDROCORTISONE ACETATE [Concomitant]
     Route: 065
  7. ALLOPURINOL [Concomitant]
     Route: 065
  8. LUNESTA [Concomitant]
     Route: 065

REACTIONS (2)
  - OBSTRUCTIVE UROPATHY [None]
  - SEPSIS [None]
